FAERS Safety Report 7025497-2 (Version None)
Quarter: 2010Q4

REPORT INFORMATION
  Report Type: 
  Country: None (occurrence: None)
  Receive Date: 20101001
  Receipt Date: 20100923
  Transmission Date: 20110411
  Serious: Yes (Hospitalization, Other)
  Sender: FDA-Public Use
  Company Number: US-AMGEN-QUU434193

PATIENT
  Sex: Male
  Weight: 109.6 kg

DRUGS (4)
  1. NPLATE [Suspect]
     Indication: IDIOPATHIC THROMBOCYTOPENIC PURPURA
     Dates: start: 20090915, end: 20100118
  2. CORTICOSTEROIDS [Concomitant]
     Dates: start: 20090731
  3. IMMU-G [Concomitant]
     Route: 042
     Dates: start: 20090901
  4. RITUXIMAB [Concomitant]
     Dates: start: 20090817

REACTIONS (3)
  - ATRIAL FIBRILLATION [None]
  - INTERSTITIAL LUNG DISEASE [None]
  - TACHYCARDIA [None]
